FAERS Safety Report 18440100 (Version 2)
Quarter: 2020Q4

REPORT INFORMATION
  Report Type: Spontaneous
  Country: JP (occurrence: JP)
  Receive Date: 20201029
  Receipt Date: 20201223
  Transmission Date: 20210114
  Serious: Yes (Death, Other)
  Sender: FDA-Public Use
  Company Number: JP-ASTELLAS-2020JP016329

PATIENT
  Age: 56 Year
  Sex: Male

DRUGS (4)
  1. MINOCYCLINE HYDROCHLORIDE. [Concomitant]
     Active Substance: MINOCYCLINE HYDROCHLORIDE
     Indication: ANTIFUNGAL TREATMENT
     Route: 042
  2. FUNGUARD [Suspect]
     Active Substance: MICAFUNGIN SODIUM
     Indication: ANTIFUNGAL TREATMENT
     Route: 042
  3. VORICONAZOLE. [Concomitant]
     Active Substance: VORICONAZOLE
     Indication: ANTIFUNGAL TREATMENT
     Route: 042
  4. DORIPENEM MONOHYDRATE [Concomitant]
     Active Substance: DORIPENEM MONOHYDRATE
     Indication: ANTIFUNGAL TREATMENT
     Route: 042

REACTIONS (3)
  - Multiple organ dysfunction syndrome [Fatal]
  - Bronchiectasis [Unknown]
  - Disseminated intravascular coagulation [Fatal]
